FAERS Safety Report 25818782 (Version 1)
Quarter: 2025Q3

REPORT INFORMATION
  Report Type: Spontaneous
  Country: US (occurrence: None)
  Receive Date: 20250918
  Receipt Date: 20250918
  Transmission Date: 20251020
  Serious: Yes (Other)
  Sender: FDA-CTU
  Company Number: None

PATIENT
  Age: 44 Year
  Sex: Female
  Weight: 76.5 kg

DRUGS (5)
  1. DELSYM [Suspect]
     Active Substance: DEXTROMETHORPHAN
  2. QUANFACINE [Concomitant]
  3. XYZAL [Concomitant]
     Active Substance: LEVOCETIRIZINE DIHYDROCHLORIDE
  4. PEPCID [Concomitant]
     Active Substance: FAMOTIDINE
  5. TYLENOL [Concomitant]
     Active Substance: ACETAMINOPHEN

REACTIONS (3)
  - Anxiety [None]
  - Panic attack [None]
  - Vomiting [None]

NARRATIVE: CASE EVENT DATE: 20250916
